FAERS Safety Report 15800107 (Version 1)
Quarter: 2019Q1

REPORT INFORMATION
  Report Type: Spontaneous
  Country: US (occurrence: US)
  Receive Date: 20190108
  Receipt Date: 20190108
  Transmission Date: 20190417
  Serious: Yes (Death)
  Sender: FDA-Public Use
  Company Number: US-BAUSCH-BL-2018-036410

PATIENT
  Age: 48 Year
  Sex: Male

DRUGS (20)
  1. CLONAZEPAM. [Suspect]
     Active Substance: CLONAZEPAM
     Route: 051
  2. ZIPRASIDONE. [Suspect]
     Active Substance: ZIPRASIDONE
     Route: 051
  3. CLONAZEPAM. [Suspect]
     Active Substance: CLONAZEPAM
     Indication: PRODUCT USED FOR UNKNOWN INDICATION
     Route: 048
  4. GLIPIZIDE. [Suspect]
     Active Substance: GLIPIZIDE
     Indication: PRODUCT USED FOR UNKNOWN INDICATION
     Route: 048
  5. GLIPIZIDE. [Suspect]
     Active Substance: GLIPIZIDE
     Route: 051
  6. VORTIOXETINE. [Suspect]
     Active Substance: VORTIOXETINE
     Indication: PRODUCT USED FOR UNKNOWN INDICATION
     Route: 048
  7. PREGABALIN. [Suspect]
     Active Substance: PREGABALIN
     Route: 051
  8. DOXEPIN [Suspect]
     Active Substance: DOXEPIN
     Indication: PRODUCT USED FOR UNKNOWN INDICATION
     Route: 048
  9. INSULIN (GLARGINE) [Suspect]
     Active Substance: INSULIN GLARGINE
     Indication: PRODUCT USED FOR UNKNOWN INDICATION
     Route: 048
  10. DOXEPIN [Suspect]
     Active Substance: DOXEPIN
     Route: 051
  11. PREGABALIN. [Suspect]
     Active Substance: PREGABALIN
     Indication: PRODUCT USED FOR UNKNOWN INDICATION
     Route: 048
  12. METFORMIN [Suspect]
     Active Substance: METFORMIN HYDROCHLORIDE
     Indication: PRODUCT USED FOR UNKNOWN INDICATION
     Route: 048
  13. METFORMIN [Suspect]
     Active Substance: METFORMIN HYDROCHLORIDE
     Indication: PRODUCT USED FOR UNKNOWN INDICATION
     Route: 051
  14. INSULIN (GLARGINE) [Suspect]
     Active Substance: INSULIN GLARGINE
     Route: 051
  15. ZIPRASIDONE. [Suspect]
     Active Substance: ZIPRASIDONE
     Indication: PRODUCT USED FOR UNKNOWN INDICATION
     Route: 048
  16. HALOPERIDOL. [Suspect]
     Active Substance: HALOPERIDOL
     Indication: PRODUCT USED FOR UNKNOWN INDICATION
     Route: 048
  17. HALOPERIDOL. [Suspect]
     Active Substance: HALOPERIDOL
     Route: 051
  18. ALCOHOL. [Suspect]
     Active Substance: ALCOHOL
     Route: 051
  19. ALCOHOL. [Suspect]
     Active Substance: ALCOHOL
     Indication: PRODUCT USED FOR UNKNOWN INDICATION
     Route: 048
  20. VORTIOXETINE. [Suspect]
     Active Substance: VORTIOXETINE
     Route: 051

REACTIONS (1)
  - Completed suicide [Fatal]
